FAERS Safety Report 4283199-X (Version None)
Quarter: 2004Q1

REPORT INFORMATION
  Report Type: 
  Country: None (occurrence: None)
  Receive Date: 20040129
  Receipt Date: 20040116
  Transmission Date: 20041129
  Serious: Yes (Death)
  Sender: FDA-Public Use
  Company Number: 2004-DE-00268GD

PATIENT
  Age: 74 Year
  Sex: Male

DRUGS (4)
  1. CYCLOPHOSPHAMIDE [Suspect]
     Indication: PULMONARY ALVEOLAR HAEMORRHAGE
     Dosage: 100 MG
  2. CYCLOPHOSPHAMIDE [Suspect]
     Indication: VASCULITIS
     Dosage: 100 MG
  3. SOLU-MEDROL [Suspect]
     Indication: VASCULITIS
     Dosage: 2 MG/KG/ D, IV
     Route: 042
  4. LEVOFLOXACINE (LEVOFLOXACINE) [Concomitant]

REACTIONS (32)
  - ANTINEUTROPHIL CYTOPLASMIC ANTIBODY POSITIVE [None]
  - ANTINUCLEAR ANTIBODY POSITIVE [None]
  - BLOOD ALBUMIN DECREASED [None]
  - CHEST PAIN [None]
  - COMPLEMENT FACTOR C3 DECREASED [None]
  - COUGH [None]
  - CREPITATIONS [None]
  - DNA ANTIBODY POSITIVE [None]
  - DRUG INEFFECTIVE [None]
  - DYSPNOEA [None]
  - FATIGUE [None]
  - GENERAL PHYSICAL HEALTH DETERIORATION [None]
  - GLOMERULONEPHRITIS PROLIFERATIVE [None]
  - HAEMATURIA [None]
  - HAEMOPTYSIS [None]
  - HYPOXIA [None]
  - IRON DEFICIENCY ANAEMIA [None]
  - LUNG CONSOLIDATION [None]
  - MALAISE [None]
  - MEAN CELL VOLUME DECREASED [None]
  - MULTI-ORGAN FAILURE [None]
  - NECROSIS [None]
  - PALLOR [None]
  - PLATELET COUNT INCREASED [None]
  - PROTEINURIA [None]
  - PULMONARY HAEMORRHAGE [None]
  - RENAL FAILURE [None]
  - RESPIRATORY FAILURE [None]
  - RHEUMATOID FACTOR INCREASED [None]
  - SEPSIS [None]
  - TACHYPNOEA [None]
  - WHITE BLOOD CELL COUNT INCREASED [None]
